FAERS Safety Report 20901504 (Version 2)
Quarter: 2022Q2

REPORT INFORMATION
  Report Type: Spontaneous
  Country: DE (occurrence: DE)
  Receive Date: 20220601
  Receipt Date: 20220624
  Transmission Date: 20220721
  Serious: Yes (Other)
  Sender: FDA-Public Use
  Company Number: DE-002147023-NVSC2022DE117427

PATIENT

DRUGS (3)
  1. RUXOLITINIB [Suspect]
     Active Substance: RUXOLITINIB
     Indication: Primary myelofibrosis
     Dosage: 1 DOSAGE FORM, BID (1-0-1)
     Route: 065
  2. EXJADE [Suspect]
     Active Substance: DEFERASIROX
     Indication: Iron overload
     Dosage: UNK UNK, QD (1X DAILY)
     Route: 065
     Dates: start: 20220421
  3. EXJADE [Suspect]
     Active Substance: DEFERASIROX
     Dosage: 360 MG, BID
     Route: 065
     Dates: start: 20220606

REACTIONS (3)
  - Iron overload [Unknown]
  - Serum ferritin increased [Recovering/Resolving]
  - Coronavirus infection [Not Recovered/Not Resolved]

NARRATIVE: CASE EVENT DATE: 20220510
